FAERS Safety Report 17005305 (Version 1)
Quarter: 2019Q4

REPORT INFORMATION
  Report Type: Spontaneous
  Country: US (occurrence: US)
  Receive Date: 20190926
  Receipt Date: 20190926
  Transmission Date: 20200122
  Serious: No
  Sender: FDA-Public Use
  Company Number: None

PATIENT
  Age: 25 Year
  Sex: Female

DRUGS (1)
  1. GLATOPA [Suspect]
     Active Substance: GLATIRAMER ACETATE
     Indication: MULTIPLE SCLEROSIS
     Route: 058
     Dates: start: 201906

REACTIONS (8)
  - Tremor [None]
  - Chest pain [None]
  - Nasopharyngitis [None]
  - Drug ineffective [None]
  - Throat irritation [None]
  - Multiple sclerosis [None]
  - Gastrooesophageal reflux disease [None]
  - Diplopia [None]

NARRATIVE: CASE EVENT DATE: 20190926
